FAERS Safety Report 10360354 (Version 1)
Quarter: 2014Q3

REPORT INFORMATION
  Report Type: Spontaneous
  Country: US (occurrence: US)
  Receive Date: 20140804
  Receipt Date: 20140804
  Transmission Date: 20150326
  Serious: Yes (Other)
  Sender: FDA-Public Use
  Company Number: US-BAYER-2014-112106

PATIENT
  Age: 28 Year
  Sex: Female

DRUGS (1)
  1. MIRENA [Suspect]
     Active Substance: LEVONORGESTREL
     Indication: CONTRACEPTION
     Dosage: 20 MCG/24HR, CONT
     Route: 015
     Dates: start: 201311, end: 20140620

REACTIONS (14)
  - Uterine cervical pain [Recovering/Resolving]
  - Procedural pain [None]
  - Drug ineffective [None]
  - Genital haemorrhage [None]
  - Abdominal pain lower [Recovering/Resolving]
  - Fatigue [Recovering/Resolving]
  - Pregnancy with contraceptive device [None]
  - Amenorrhoea [None]
  - Bacterial vaginosis [Recovering/Resolving]
  - Pelvic pain [Recovered/Resolved]
  - Malaise [Recovering/Resolving]
  - Genital haemorrhage [Recovering/Resolving]
  - Abortion incomplete [None]
  - Abortion spontaneous [None]

NARRATIVE: CASE EVENT DATE: 201311
